FAERS Safety Report 26086784 (Version 1)
Quarter: 2025Q4

REPORT INFORMATION
  Report Type: Report from Study
  Country: PK (occurrence: PK)
  Receive Date: 20251125
  Receipt Date: 20251125
  Transmission Date: 20260117
  Serious: Yes (Other)
  Sender: ROCHE
  Company Number: PK-ROCHE-10000436948

PATIENT
  Age: 69 Year
  Sex: Male

DRUGS (1)
  1. MABTHERA [Suspect]
     Active Substance: RITUXIMAB
     Indication: Diffuse large B-cell lymphoma
     Dosage: PATIENT INFUSED TOTAL 2 CYCLES
     Route: 058
     Dates: start: 20250702, end: 20250802

REACTIONS (2)
  - Immunodeficiency [Unknown]
  - Asthenia [Unknown]

NARRATIVE: CASE EVENT DATE: 20250821
